FAERS Safety Report 23674006 (Version 2)
Quarter: 2024Q2

REPORT INFORMATION
  Report Type: Spontaneous
  Country: DE (occurrence: DE)
  Receive Date: 20240326
  Receipt Date: 20240402
  Transmission Date: 20240716
  Serious: Yes (Death, Other)
  Sender: FDA-Public Use
  Company Number: DE-HORIZON THERAPEUTICS-HZN-2021-010061

PATIENT

DRUGS (1)
  1. ACTIMMUNE [Suspect]
     Active Substance: INTERFERON GAMMA-1B
     Indication: Nocardiosis
     Dosage: 100 UG, THREE TIMES A WEEK
     Route: 058

REACTIONS (4)
  - Bronchopulmonary aspergillosis [Fatal]
  - Immunosuppression [Fatal]
  - Pancytopenia [Unknown]
  - Drug effective for unapproved indication [Unknown]
